FAERS Safety Report 18717392 (Version 1)
Quarter: 2021Q1

REPORT INFORMATION
  Report Type: Spontaneous
  Country: US (occurrence: US)
  Receive Date: 20210108
  Receipt Date: 20210108
  Transmission Date: 20210419
  Serious: No
  Sender: FDA-Public Use
  Company Number: US-AMNEAL PHARMACEUTICALS-2020-AMRX-03087

PATIENT
  Age: 8 Month
  Sex: Male

DRUGS (3)
  1. VIGABATRIN. [Suspect]
     Active Substance: VIGABATRIN
     Indication: INFANTILE SPASMS
     Dosage: 250 MILLIGRAM, 2 /DAY, 1 PACKET IN 10ML OF WATER TO GIVE/TAKE 5ML TWICE DAY FROM DAY 1 TO 3
     Route: 048
     Dates: start: 2020, end: 2020
  2. VIGABATRIN. [Suspect]
     Active Substance: VIGABATRIN
     Dosage: 750 MILLIGRAM, 2 /DAY, 2 PACKETS IN 20ML OF WATER AND THEREAFTER GIVE/TAKE 15ML TWICE A DAY
     Route: 048
     Dates: start: 2020, end: 20200926
  3. VIGABATRIN. [Suspect]
     Active Substance: VIGABATRIN
     Dosage: 500 MILLIGRAM, 2 /DAY, 1 PACKET IN 10ML OF WATER AND GIVE/TAKE 10ML TWICE A DAY
     Route: 048
     Dates: start: 2020, end: 2020

REACTIONS (3)
  - Vomiting [Unknown]
  - Withdrawal syndrome [Unknown]
  - Product dose omission issue [Unknown]

NARRATIVE: CASE EVENT DATE: 20200927
